FAERS Safety Report 7628502-5 (Version None)
Quarter: 2011Q3

REPORT INFORMATION
  Report Type: 
  Country: None (occurrence: None)
  Receive Date: 20110721
  Receipt Date: 20110721
  Transmission Date: 20111222
  Serious: Yes (Hospitalization)
  Sender: FDA-Public Use
  Company Number: None

PATIENT
  Age: 56 Year
  Sex: Male
  Weight: 107.3 kg

DRUGS (1)
  1. LOSARTAN POTASSIUM [Suspect]
     Dosage: 50 MG EVERY DAY PO
     Route: 048
     Dates: start: 20081117, end: 20090311

REACTIONS (1)
  - ANGIOEDEMA [None]
